FAERS Safety Report 4827454-0 (Version None)
Quarter: 2005Q4

REPORT INFORMATION
  Report Type: 
  Country: None (occurrence: None)
  Receive Date: 20051114
  Receipt Date: 20051102
  Transmission Date: 20060501
  Serious: Yes (Life-Threatening, Hospitalization)
  Sender: FDA-Public Use
  Company Number: DE-ROCHE-423621

PATIENT
  Age: 50 Year
  Sex: Female

DRUGS (10)
  1. DIAZEPAM [Suspect]
     Route: 048
     Dates: start: 19980615
  2. MARCUMAR [Suspect]
     Indication: DRUG USE FOR UNKNOWN INDICATION
     Route: 048
  3. FLUPIRTINE [Suspect]
     Route: 048
     Dates: start: 20040715, end: 20050315
  4. BISACODYL [Concomitant]
  5. CALCILAC [Concomitant]
     Route: 048
  6. SAROTEN [Concomitant]
     Route: 048
  7. BIFITERAL [Concomitant]
     Route: 048
  8. BELOC-ZOK [Concomitant]
     Route: 048
  9. OXYGESIC [Concomitant]
     Route: 048
     Dates: end: 20050215
  10. KONAKION [Concomitant]

REACTIONS (2)
  - HEPATIC FAILURE [None]
  - HEPATITIS [None]
